FAERS Safety Report 7360288-4 (Version None)
Quarter: 2011Q1

REPORT INFORMATION
  Report Type: 
  Country: None (occurrence: None)
  Receive Date: 20110318
  Receipt Date: 20110310
  Transmission Date: 20110831
  Serious: Yes (Hospitalization)
  Sender: FDA-Public Use
  Company Number: US-NOVOPROD-324770

PATIENT
  Age: 43 Year
  Sex: Male
  Weight: 90.703 kg

DRUGS (2)
  1. LEVEMIR [Concomitant]
     Indication: TYPE 2 DIABETES MELLITUS
  2. NOVOLOG [Suspect]
     Indication: TYPE 2 DIABETES MELLITUS
     Dosage: UNKNOWN
     Route: 058
     Dates: start: 20110306, end: 20110308

REACTIONS (3)
  - URTICARIA [None]
  - ANAPHYLACTIC SHOCK [None]
  - WRONG DRUG ADMINISTERED [None]
